FAERS Safety Report 14563483 (Version 1)
Quarter: 2018Q1

REPORT INFORMATION
  Report Type: Spontaneous
  Country: US (occurrence: US)
  Receive Date: 20180222
  Receipt Date: 20180222
  Transmission Date: 20180509
  Serious: No
  Sender: FDA-Public Use
  Company Number: None

PATIENT
  Sex: Female

DRUGS (1)
  1. SUTENT [Suspect]
     Active Substance: SUNITINIB MALATE
     Indication: SOFT TISSUE SARCOMA
     Dosage: 50MG DAILY FOR4 WEEKS, THEN 2 WEEKS OFF PO
     Route: 048
     Dates: start: 20171201

REACTIONS (2)
  - Epistaxis [None]
  - Chromaturia [None]
